FAERS Safety Report 19585617 (Version 1)
Quarter: 2021Q3

REPORT INFORMATION
  Report Type: Report from Study
  Country: BR (occurrence: BR)
  Receive Date: 20210720
  Receipt Date: 20210720
  Transmission Date: 20211014
  Serious: Yes (Other)
  Sender: FDA-Public Use
  Company Number: NVSC2021BR155441

PATIENT
  Sex: Female

DRUGS (1)
  1. DIOVAN [Suspect]
     Active Substance: VALSARTAN
     Indication: PRODUCT USED FOR UNKNOWN INDICATION
     Dosage: BID, STARTED LONG TIME AGO
     Route: 065

REACTIONS (16)
  - Myocardial infarction [Unknown]
  - Feeling abnormal [Unknown]
  - Vomiting [Unknown]
  - Insomnia [Unknown]
  - Cardiac disorder [Unknown]
  - Infarction [Unknown]
  - Dysarthria [Unknown]
  - Illness [Unknown]
  - Nausea [Unknown]
  - Drug ineffective [Unknown]
  - Malaise [Unknown]
  - Hypertension [Unknown]
  - Ill-defined disorder [Unknown]
  - Headache [Unknown]
  - Dysstasia [Unknown]
  - Blood pressure increased [Unknown]
